FAERS Safety Report 7263418-8 (Version None)
Quarter: 2011Q1

REPORT INFORMATION
  Report Type: 
  Country: None (occurrence: None)
  Receive Date: 20110130
  Receipt Date: 20101202
  Transmission Date: 20110831
  Serious: No
  Sender: FDA-Public Use
  Company Number: US-ABBOTT-10P-163-0689306-00

PATIENT
  Age: 56 Year
  Sex: Female

DRUGS (7)
  1. BAYER [Concomitant]
     Indication: PRODUCT USED FOR UNKNOWN INDICATION
     Dosage: ONE LOW DOSE
  2. HUMIRA [Suspect]
     Indication: CROHN'S DISEASE
     Dates: start: 20101001
  3. FOLIC ACID [Concomitant]
     Indication: VITAMIN SUPPLEMENTATION
  4. TYLENOL (CAPLET) [Concomitant]
     Indication: PAIN
  5. FISH OIL [Concomitant]
     Indication: VITAMIN SUPPLEMENTATION
  6. WOMENS ONE A DAY [Concomitant]
     Indication: VITAMIN SUPPLEMENTATION
  7. CALTRATE + D [Concomitant]
     Indication: MINERAL SUPPLEMENTATION

REACTIONS (1)
  - INJECTION SITE PAIN [None]
